FAERS Safety Report 23463026 (Version 1)
Quarter: 2024Q1

REPORT INFORMATION
  Report Type: Spontaneous
  Country: US (occurrence: None)
  Receive Date: 20240131
  Receipt Date: 20240131
  Transmission Date: 20240410
  Serious: Yes (Hospitalization)
  Sender: FDA-Public Use
  Company Number: None

PATIENT
  Sex: Female

DRUGS (1)
  1. VIGABATRIN [Suspect]
     Active Substance: VIGABATRIN
     Indication: Infantile spasms
     Dosage: FREQUENCY : TWICE A DAY;?OTHER ROUTE : GTUBE;?
     Route: 050
     Dates: start: 202107

REACTIONS (3)
  - Influenza [None]
  - Pneumonia [None]
  - Vomiting [None]
